FAERS Safety Report 8876743 (Version 1)
Quarter: 2012Q4

REPORT INFORMATION
  Report Type: 
  Country: US (occurrence: US)
  Receive Date: 20121029
  Receipt Date: 20121029
  Transmission Date: 20130627
  Serious: No
  Sender: FDA-Public Use
  Company Number: US-PFIZER INC-2012264662

PATIENT
  Age: 47 Year
  Sex: Male
  Weight: 58.96 kg

DRUGS (2)
  1. CAVERJECT [Suspect]
     Indication: ERECTILE DYSFUNCTION
     Dosage: 20 ug, UNK
     Dates: start: 201207
  2. CAVERJECT [Suspect]
     Dosage: UNK
     Dates: start: 2012, end: 2012

REACTIONS (1)
  - Drug ineffective [Unknown]
